FAERS Safety Report 5385423-9 (Version None)
Quarter: 2007Q3

REPORT INFORMATION
  Report Type: 
  Country: None (occurrence: None)
  Receive Date: 20070706
  Receipt Date: 20070706
  Transmission Date: 20080115
  Serious: Yes (Life-Threatening, Hospitalization)
  Sender: FDA-Public Use
  Company Number: None

PATIENT
  Sex: Male
  Weight: 70.7611 kg

DRUGS (2)
  1. DEMEROL [Suspect]
     Indication: ENDOSCOPIC RETROGRADE CHOLANGIOPANCREATOGRAPHY
     Dosage: 75MG ONCE IV
     Route: 042
     Dates: start: 20070517
  2. VERSED [Suspect]
     Dosage: 4MG ONCE IV
     Route: 042
     Dates: start: 20070517

REACTIONS (5)
  - CARDIO-RESPIRATORY ARREST [None]
  - OXYGEN SATURATION DECREASED [None]
  - PROCEDURAL COMPLICATION [None]
  - RHONCHI [None]
  - TACHYCARDIA [None]
